FAERS Safety Report 5878335-5 (Version None)
Quarter: 2008Q3

REPORT INFORMATION
  Report Type: 
  Country: None (occurrence: None)
  Receive Date: 20080911
  Receipt Date: 20080830
  Transmission Date: 20090109
  Serious: Yes (Hospitalization, Other)
  Sender: FDA-Public Use
  Company Number: US-PFIZER INC-2008056460

PATIENT
  Sex: Female
  Weight: 54.5 kg

DRUGS (10)
  1. CHANTIX [Suspect]
     Indication: SMOKING CESSATION THERAPY
     Route: 048
     Dates: start: 20080601, end: 20080701
  2. XANAX [Suspect]
     Indication: ANXIETY
     Route: 048
  3. XANAX [Suspect]
     Indication: SLEEP DISORDER
  4. DEMEROL [Suspect]
     Dates: start: 20080101
  5. PROZAC [Concomitant]
     Indication: DEPRESSION
     Route: 048
  6. CHONDROITIN/GLUCOSAMINE [Concomitant]
  7. MULTI-VITAMINS [Concomitant]
     Dosage: TEXT:ONE DAILY
     Route: 048
  8. LORTAB [Concomitant]
     Indication: PAIN
     Dosage: TEXT:AS NEEDED TWICE A DAY
     Route: 048
  9. DEPAKOTE [Concomitant]
     Route: 048
  10. ACETYLSALICYLIC ACID SRT [Concomitant]
     Route: 048

REACTIONS (21)
  - AGGRESSION [None]
  - AGITATION [None]
  - ANOREXIA [None]
  - ANXIETY DISORDER [None]
  - ARTHRITIS [None]
  - BLOOD PRESSURE INCREASED [None]
  - BONE PAIN [None]
  - CONFUSIONAL STATE [None]
  - EXOSTOSIS [None]
  - HEADACHE [None]
  - HEMIPARESIS [None]
  - HEMIPLEGIA [None]
  - HYPOAESTHESIA [None]
  - INCONTINENCE [None]
  - MEMORY IMPAIRMENT [None]
  - MUSCLE SPASMS [None]
  - NAUSEA [None]
  - PAIN [None]
  - PARAESTHESIA [None]
  - PHARYNGITIS STREPTOCOCCAL [None]
  - SWELLING [None]
